FAERS Safety Report 18248799 (Version 1)
Quarter: 2020Q3

REPORT INFORMATION
  Report Type: Spontaneous
  Country: US (occurrence: US)
  Receive Date: 20200909
  Receipt Date: 20200909
  Transmission Date: 20201103
  Serious: No
  Sender: FDA-Public Use
  Company Number: US-PERRIGO-20US010609

PATIENT
  Age: 55 Year
  Sex: Female
  Weight: 58.96 kg

DRUGS (2)
  1. ALBUTEROL SULFATE. [Suspect]
     Active Substance: ALBUTEROL SULFATE
     Indication: CHRONIC OBSTRUCTIVE PULMONARY DISEASE
     Dosage: UNKNOWN, EVERY 4 HOURS
     Route: 055
     Dates: start: 202005, end: 202005
  2. ALBUTEROL SULFATE. [Suspect]
     Active Substance: ALBUTEROL SULFATE
     Indication: EMPHYSEMA
     Dosage: UNKNOWN, EVERY 4 HOURS
     Route: 055
     Dates: start: 20200701

REACTIONS (3)
  - Accidental exposure to product [Recovered/Resolved]
  - Device delivery system issue [Unknown]
  - Incorrect dose administered [Unknown]

NARRATIVE: CASE EVENT DATE: 202005
